FAERS Safety Report 17162430 (Version 1)
Quarter: 2019Q4

REPORT INFORMATION
  Report Type: Spontaneous
  Country: US (occurrence: US)
  Receive Date: 20191216
  Receipt Date: 20191216
  Transmission Date: 20200122
  Serious: Yes (Hospitalization, Disabling, Other)
  Sender: FDA-Public Use
  Company Number: None

PATIENT
  Age: 28 Year
  Sex: Male
  Weight: 69.75 kg

DRUGS (2)
  1. CITALOPRAM [Concomitant]
     Active Substance: CITALOPRAM HYDROBROMIDE
  2. FINASTRIDE [Suspect]
     Active Substance: FINASTERIDE
     Indication: ALOPECIA

REACTIONS (3)
  - Anxiety [None]
  - Depression [None]
  - Product complaint [None]

NARRATIVE: CASE EVENT DATE: 20191118
